FAERS Safety Report 21567583 (Version 4)
Quarter: 2023Q1

REPORT INFORMATION
  Report Type: Spontaneous
  Country: IE (occurrence: IE)
  Receive Date: 20221108
  Receipt Date: 20230130
  Transmission Date: 20230418
  Serious: Yes (Death, Life-Threatening, Hospitalization, Other)
  Sender: FDA-Public Use
  Company Number: None

PATIENT
  Age: 73 Year
  Sex: Female
  Weight: 60 kg

DRUGS (11)
  1. JANUVIA [Suspect]
     Active Substance: SITAGLIPTIN PHOSPHATE
     Dosage: 100 MG DAILY
     Route: 048
     Dates: start: 20221003, end: 20221009
  2. GLICLAZIDE [Suspect]
     Active Substance: GLICLAZIDE
     Dosage: 160 MG DAILY
     Route: 048
     Dates: start: 20221003, end: 20221009
  3. DAPAGLIFLOZIN [Suspect]
     Active Substance: DAPAGLIFLOZIN
     Dosage: 10 MG DAILY
     Route: 048
     Dates: start: 20221003, end: 20221009
  4. MIRABEGRON [Suspect]
     Active Substance: MIRABEGRON
     Dosage: 50 MG DAILY
     Dates: start: 20221003, end: 20221009
  5. ASPIRIN [Suspect]
     Active Substance: ASPIRIN
     Dosage: 75 MG DAILY
     Route: 065
     Dates: start: 20221003, end: 20221009
  6. EPILIM [Suspect]
     Active Substance: VALPROATE SODIUM
     Dosage: 1G DAILY / 500MG BD
     Dates: start: 20221003, end: 20221009
  7. CETIRIZINE HYDROCHLORIDE [Suspect]
     Active Substance: CETIRIZINE HYDROCHLORIDE
     Dosage: 10 MG DAILY
     Route: 065
     Dates: start: 20221003, end: 20221009
  8. ATORVASTATIN CALCIUM [Suspect]
     Active Substance: ATORVASTATIN CALCIUM
     Dosage: 20 MG DAILY - BUT NOTE USUALLY TAKING 40 MG
     Route: 065
     Dates: start: 20221003, end: 20221009
  9. CALCIUM\CHOLECALCIFEROL [Suspect]
     Active Substance: CALCIUM\CHOLECALCIFEROL
     Dosage: BD
     Dates: start: 20221003, end: 20221009
  10. CLONAZEPAM [Suspect]
     Active Substance: CLONAZEPAM
     Dosage: 1 MG NOCTE - NOT ALPRAZOLAM AS ON USUAL LIST
     Dates: start: 20221003, end: 20221009
  11. LANSOPRAZOLE [Concomitant]
     Active Substance: LANSOPRAZOLE
     Dosage: 30 MG DAILY - THE SAME AS HER USUAL LIST

REACTIONS (7)
  - Wrong patient received product [Fatal]
  - Seizure [Fatal]
  - Hypoxic-ischaemic encephalopathy [Fatal]
  - Hypoglycaemia [Fatal]
  - Pneumonia aspiration [Fatal]
  - Rhabdomyolysis [Fatal]
  - Magnetic resonance imaging head abnormal [Fatal]

NARRATIVE: CASE EVENT DATE: 20221009
